FAERS Safety Report 24445695 (Version 1)
Quarter: 2024Q4

REPORT INFORMATION
  Report Type: Spontaneous
  Country: US (occurrence: US)
  Receive Date: 20241016
  Receipt Date: 20241016
  Transmission Date: 20250115
  Serious: No
  Sender: PFIZER
  Company Number: US-PFIZER INC-202400276367

PATIENT

DRUGS (1)
  1. DEPO-ESTRADIOL [Suspect]
     Active Substance: ESTRADIOL CYPIONATE
     Indication: Transgender hormonal therapy
     Dosage: UNK

REACTIONS (5)
  - Off label use [Unknown]
  - Drug ineffective for unapproved indication [Unknown]
  - Product availability issue [Unknown]
  - Therapy interrupted [Unknown]
  - Expired product administered [Unknown]

NARRATIVE: CASE EVENT DATE: 20240801
